FAERS Safety Report 6372841-5 (Version None)
Quarter: 2009Q3

REPORT INFORMATION
  Report Type: 
  Country: None (occurrence: None)
  Receive Date: 20090924
  Receipt Date: 20081209
  Transmission Date: 20100115
  Serious: No
  Sender: FDA-Public Use
  Company Number: US-ASTRAZENECA-2008UW27362

PATIENT
  Age: 11 Year
  Sex: Male
  Weight: 45.4 kg

DRUGS (5)
  1. SEROQUEL [Suspect]
     Indication: ABNORMAL BEHAVIOUR
     Route: 048
     Dates: start: 20081205
  2. SEROQUEL [Suspect]
     Dosage: 25 MG IN MORNING AND 50 MG AT BEDTIME
     Route: 048
     Dates: start: 20081207, end: 20081208
  3. RISPERDAL [Concomitant]
  4. RITALIN [Concomitant]
  5. CLONIDINE [Concomitant]

REACTIONS (7)
  - DYSKINESIA [None]
  - FACIAL SPASM [None]
  - HEART RATE INCREASED [None]
  - HYPERSENSITIVITY [None]
  - ILL-DEFINED DISORDER [None]
  - LOGORRHOEA [None]
  - TREMOR [None]
